FAERS Safety Report 17945907 (Version 2)
Quarter: 2020Q3

REPORT INFORMATION
  Report Type: Spontaneous
  Country: SV (occurrence: SV)
  Receive Date: 20200625
  Receipt Date: 20200707
  Transmission Date: 20201103
  Serious: Yes (Death, Hospitalization)
  Sender: FDA-Public Use
  Company Number: NVSC2020SV179256

PATIENT
  Age: 59 Year
  Sex: Male
  Weight: 150 kg

DRUGS (1)
  1. GLIVEC [Suspect]
     Active Substance: IMATINIB MESYLATE
     Indication: CHRONIC MYELOID LEUKAEMIA
     Dosage: 400 MG, QD (1 X 400 MG TABLET)
     Route: 048
     Dates: start: 201205, end: 202003

REACTIONS (7)
  - Haemoglobin decreased [Fatal]
  - Dyspnoea [Fatal]
  - White blood cell count increased [Fatal]
  - Platelet count decreased [Fatal]
  - Therapeutic response decreased [Unknown]
  - Pneumonia [Fatal]
  - Leukocytosis [Unknown]

NARRATIVE: CASE EVENT DATE: 202003
